FAERS Safety Report 9645343 (Version 1)
Quarter: 2013Q4

REPORT INFORMATION
  Report Type: Report from Study
  Country: CA (occurrence: CA)
  Receive Date: 20131025
  Receipt Date: 20131025
  Transmission Date: 20140711
  Serious: Yes (Other)
  Sender: FDA-Public Use
  Company Number: CA-JNJFOC-20131012626

PATIENT
  Age: 45 Year
  Sex: Female
  Weight: 102.5 kg

DRUGS (1)
  1. REMICADE [Suspect]
     Indication: PSORIATIC ARTHROPATHY
     Route: 042
     Dates: start: 201212

REACTIONS (2)
  - Cholelithiasis [Recovering/Resolving]
  - Therapeutic response decreased [Unknown]
